FAERS Safety Report 4637228-1 (Version None)
Quarter: 2005Q2

REPORT INFORMATION
  Report Type: 
  Country: None (occurrence: None)
  Receive Date: 20050325
  Receipt Date: 20041203
  Transmission Date: 20051028
  Serious: No
  Sender: FDA-Public Use
  Company Number: USA041285171

PATIENT
  Age: 79 Year
  Sex: Female
  Weight: 55 kg

DRUGS (4)
  1. FORTEO [Suspect]
     Indication: OSTEOPOROSIS
     Dates: start: 20041202
  2. DIGOXIN [Concomitant]
  3. COUMADIN [Concomitant]
  4. SYNTHROID [Concomitant]

REACTIONS (2)
  - FATIGUE [None]
  - HEADACHE [None]
